FAERS Safety Report 25860143 (Version 2)
Quarter: 2025Q4

REPORT INFORMATION
  Report Type: Spontaneous
  Country: SA (occurrence: SA)
  Receive Date: 20250929
  Receipt Date: 20251209
  Transmission Date: 20260117
  Serious: Yes (Death, Hospitalization, Other)
  Sender: SANOFI AVENTIS
  Company Number: SA-SANOFI-02660693

PATIENT
  Age: 19 Month
  Sex: Male
  Weight: 9.6 kg

DRUGS (4)
  1. MYOZYME [Suspect]
     Active Substance: ALGLUCOSIDASE ALFA
     Dosage: QOW
     Route: 042
     Dates: start: 20240503
  2. MYOZYME [Suspect]
     Active Substance: ALGLUCOSIDASE ALFA
     Dosage: UNK
  3. HYDROCORTISONE [Concomitant]
     Active Substance: HYDROCORTISONE
     Indication: Premedication
  4. AZOMYCIN [Concomitant]
     Indication: Antibiotic prophylaxis
     Dosage: BIW
     Route: 048

REACTIONS (6)
  - Seizure [Not Recovered/Not Resolved]
  - Gait inability [Not Recovered/Not Resolved]
  - Dysstasia [Not Recovered/Not Resolved]
  - Death [Fatal]
  - Cyanosis [Not Recovered/Not Resolved]
  - Oxygen saturation decreased [Not Recovered/Not Resolved]

NARRATIVE: CASE EVENT DATE: 20250101
